FAERS Safety Report 11990959 (Version 6)
Quarter: 2016Q1

REPORT INFORMATION
  Report Type: Report from Study
  Country: CN (occurrence: CN)
  Receive Date: 20160202
  Receipt Date: 20160324
  Transmission Date: 20160526
  Serious: Yes (Other)
  Sender: FDA-Public Use
  Company Number: PHHY2015CN142369

PATIENT
  Age: 58 Year
  Sex: Male
  Weight: 58.7 kg

DRUGS (120)
  1. MYFORTIC [Suspect]
     Active Substance: MYCOPHENOLATE SODIUM
     Dosage: 1080 MG, QD
     Route: 065
     Dates: start: 20150913, end: 20151005
  2. METHYLPREDNISOLONE. [Suspect]
     Active Substance: METHYLPREDNISOLONE
     Indication: KIDNEY TRANSPLANT REJECTION
     Dosage: 500 MG, QD
     Route: 065
     Dates: start: 20150908, end: 20150911
  3. LIGUSTRAZINE [Concomitant]
     Active Substance: TETRAMETHYLPYRAZINE
     Indication: PROPHYLAXIS
     Dosage: 120 MG, QD
     Route: 042
     Dates: start: 20150921, end: 20151004
  4. NIFEDIPINE. [Concomitant]
     Active Substance: NIFEDIPINE
     Dosage: 10 MG, QD
     Route: 048
     Dates: start: 20150912, end: 20150912
  5. AMPHOTERICIN B. [Concomitant]
     Active Substance: AMPHOTERICIN B
     Indication: ANTIFUNGAL PROPHYLAXIS
     Dosage: 10 MG, QD
     Route: 042
     Dates: start: 20150908, end: 20150921
  6. FUROSEMIDE. [Concomitant]
     Active Substance: FUROSEMIDE
     Indication: ACUTE KIDNEY INJURY
     Dosage: 40 MG, BID
     Route: 042
     Dates: start: 20150921, end: 20150921
  7. FUROSEMIDE. [Concomitant]
     Active Substance: FUROSEMIDE
     Dosage: 20 MG, BID
     Route: 042
     Dates: start: 20151005, end: 20151024
  8. FUROSEMIDE. [Concomitant]
     Active Substance: FUROSEMIDE
     Dosage: 40 MG, QD
     Route: 065
     Dates: start: 20150908, end: 20150910
  9. ALLOPURINOL. [Concomitant]
     Active Substance: ALLOPURINOL
     Indication: PROPHYLAXIS
     Dosage: 1000 MG, BID
     Route: 048
     Dates: start: 20151202
  10. CASPOFUNGIN ACETATE [Concomitant]
     Active Substance: CASPOFUNGIN ACETATE
     Indication: LUNG INFECTION
     Dosage: 50 MG, QD
     Route: 042
     Dates: start: 20151231
  11. MYCOPHENOLATE SODIUM [Concomitant]
     Active Substance: MYCOPHENOLATE SODIUM
     Dosage: 720 MG/DL, UNK
     Route: 065
     Dates: start: 20151202
  12. MYFORTIC [Suspect]
     Active Substance: MYCOPHENOLATE SODIUM
     Dosage: 1080 MG, QD
     Route: 065
     Dates: start: 20151005, end: 20151005
  13. BASILIXIMAB [Suspect]
     Active Substance: BASILIXIMAB
     Indication: PROPHYLAXIS AGAINST TRANSPLANT REJECTION
     Dosage: 20 MG, QD
     Route: 065
     Dates: start: 20150908, end: 20150908
  14. PREDNISONE ACETATE [Concomitant]
     Active Substance: PREDNISONE ACETATE
     Dosage: 30 MG, QD
     Route: 065
     Dates: start: 20151005
  15. SODIUM BICARBONATE. [Concomitant]
     Active Substance: SODIUM BICARBONATE
     Indication: NUTRITIONAL SUPPLEMENTATION
     Dosage: 150 ML, QD
     Route: 042
     Dates: start: 20150908, end: 20150916
  16. SODIUM BICARBONATE. [Concomitant]
     Active Substance: SODIUM BICARBONATE
     Indication: ACID BASE BALANCE
  17. IPRATROPIUM BROMIDE. [Concomitant]
     Active Substance: IPRATROPIUM BROMIDE
     Indication: PROPHYLAXIS
     Dosage: 0.5 MG, BID
     Route: 055
     Dates: start: 20150908, end: 20151004
  18. LIGUSTRAZINE [Concomitant]
     Active Substance: TETRAMETHYLPYRAZINE
     Indication: HYPERTENSION
     Dosage: 0.1 MG, BID
     Route: 048
     Dates: start: 20151005, end: 20151005
  19. BUTIOL//DEXAMETHASONE SODIUM PHOSPHATE [Concomitant]
     Indication: HYPERSENSITIVITY
  20. METHYLPREDNISOLONE W/SUCCINATE SODIUM [Concomitant]
     Active Substance: METHYLPREDNISOLONE SODIUM SUCCINATE
     Indication: PROPHYLAXIS AGAINST TRANSPLANT REJECTION
     Dosage: 400 MG, QD
     Route: 065
     Dates: start: 20150918, end: 20150918
  21. METOPROLOL TARTRATE. [Concomitant]
     Active Substance: METOPROLOL TARTRATE
     Indication: HYPERTENSION
     Dosage: 25 MG, BID
     Route: 048
     Dates: start: 20150909, end: 20151004
  22. DOXAZIN//DOXAZOSIN MESILATE [Concomitant]
     Dosage: 4 MG, BID
     Route: 048
     Dates: start: 20151005, end: 20151102
  23. ADVACAL//CALCIUM [Concomitant]
     Dosage: 4000 MG, QD
     Route: 042
     Dates: start: 20150920, end: 20150920
  24. CALCII CHLORIDUM//CALCIUM CHLORIDE [Concomitant]
     Dosage: 4000 MG, QD
     Route: 065
     Dates: start: 20150920, end: 20150920
  25. FUROSEMIDE. [Concomitant]
     Active Substance: FUROSEMIDE
     Indication: POLYURIA
     Dosage: 20 MG, BID
     Route: 042
     Dates: start: 20150923, end: 20150923
  26. FUROSEMIDE. [Concomitant]
     Active Substance: FUROSEMIDE
     Dosage: 20 MG, QD
     Route: 042
     Dates: start: 20150920, end: 20150920
  27. AMPHOTERICIN B, LIPOSOME [Concomitant]
     Active Substance: AMPHOTERICIN B
     Dosage: 20 MG, QD
     Route: 042
     Dates: start: 20160109
  28. SULFAMETHOXAZOLE [Concomitant]
     Active Substance: SULFAMETHOXAZOLE
     Indication: LUNG INFECTION
     Dosage: 960 MG, TID
     Route: 042
     Dates: start: 20151231
  29. MYCOPHENOLATE SODIUM [Concomitant]
     Active Substance: MYCOPHENOLATE SODIUM
     Indication: PRODUCT USED FOR UNKNOWN INDICATION
     Dosage: 1440 MG/DL, UNK
     Route: 065
     Dates: start: 20150908, end: 20150911
  30. MYCOPHENOLATE SODIUM [Concomitant]
     Active Substance: MYCOPHENOLATE SODIUM
     Dosage: 1120 MG/DL, UNK
     Route: 065
     Dates: start: 20150911, end: 20150913
  31. ALBUMIN HUMAN [Concomitant]
     Active Substance: ALBUMIN (HUMAN)
     Indication: PROPHYLAXIS
     Dosage: 12500 MG, QD
     Route: 042
     Dates: start: 20150923, end: 20150928
  32. ALBUMIN HUMAN [Concomitant]
     Active Substance: ALBUMIN (HUMAN)
     Indication: NUTRITIONAL SUPPLEMENTATION
     Dosage: 12500 MG, QD
     Route: 042
     Dates: start: 20151002, end: 20151004
  33. IPRATROPIUM BROMIDE. [Concomitant]
     Active Substance: IPRATROPIUM BROMIDE
     Dosage: 0.5 MG, BID
     Route: 055
     Dates: start: 20151005, end: 20151102
  34. OMEPRAZOLE SODIUM [Concomitant]
     Active Substance: OMEPRAZOLE SODIUM
     Indication: GASTRIC ULCER
     Dosage: 40 MG, QD
     Route: 042
     Dates: start: 20150908, end: 20150926
  35. METHYLPREDNISOLONE W/SUCCINATE SODIUM [Concomitant]
     Active Substance: METHYLPREDNISOLONE SODIUM SUCCINATE
     Indication: IMMUNOSUPPRESSION
  36. CALCII CHLORIDUM//CALCIUM CHLORIDE [Concomitant]
     Indication: SUPPLEMENTATION THERAPY
     Dosage: 3000 MG, QD
     Route: 042
     Dates: start: 20150915, end: 20150915
  37. CALCII CHLORIDUM//CALCIUM CHLORIDE [Concomitant]
     Dosage: 4000 UNK, UNK
     Route: 042
     Dates: start: 20150920, end: 20150920
  38. SULODEXIDE [Concomitant]
     Active Substance: SULODEXIDE
     Dosage: 250 LSU, BID
     Route: 048
     Dates: start: 20151202
  39. ULINASTATIN [Concomitant]
     Active Substance: ULINASTATIN
     Indication: PROPHYLAXIS
     Dosage: 20 WU, QD
     Route: 042
     Dates: start: 20150909, end: 20150930
  40. CEFOPERAZONE SODIUM W/SULBACTAM [Concomitant]
     Active Substance: CEFOPERAZONE SODIUM\SULBACTAM
     Indication: PROPHYLAXIS
     Dosage: 2 G, BID
     Route: 042
     Dates: start: 20150908, end: 20150921
  41. DOPAMINE [Concomitant]
     Active Substance: DOPAMINE\DOPAMINE HYDROCHLORIDE
     Indication: PROPHYLAXIS
     Dosage: 20 MG, QD
     Route: 042
     Dates: start: 20150910, end: 20150910
  42. AMBROXOL HYDROCHLORIDE [Concomitant]
     Active Substance: AMBROXOL HYDROCHLORIDE
     Indication: PROPHYLAXIS
     Dosage: 15 MG, BID
     Route: 055
     Dates: start: 20150908, end: 20151004
  43. MYFORTIC [Suspect]
     Active Substance: MYCOPHENOLATE SODIUM
     Dosage: 720 MG, QD
     Route: 065
     Dates: start: 20151005, end: 20151201
  44. CICLOSPORIN [Suspect]
     Active Substance: CYCLOSPORINE
     Indication: PRODUCT USED FOR UNKNOWN INDICATION
     Dosage: 200 MG, QD
     Route: 065
     Dates: start: 20150908, end: 20151005
  45. CICLOSPORIN [Suspect]
     Active Substance: CYCLOSPORINE
     Dosage: 175 MG, QD
     Route: 065
     Dates: start: 20151218, end: 20151230
  46. SODIUM BICARBONATE. [Concomitant]
     Active Substance: SODIUM BICARBONATE
     Indication: PROPHYLAXIS
     Dosage: 1500 MG, BID
     Route: 048
     Dates: start: 20151202, end: 20151230
  47. BUTIOL//DEXAMETHASONE SODIUM PHOSPHATE [Concomitant]
     Indication: IMMUNOSUPPRESSION
  48. PHENTOLAMINE MESILATE [Concomitant]
     Indication: HYPERTENSION
     Dosage: 5 MG, QD
     Route: 042
     Dates: start: 20150910, end: 20150910
  49. METHYLPREDNISOLONE W/SUCCINATE SODIUM [Concomitant]
     Active Substance: METHYLPREDNISOLONE SODIUM SUCCINATE
     Indication: ANTIINFLAMMATORY THERAPY
     Dosage: 500 MG, QD
     Route: 065
     Dates: start: 20150908, end: 20150911
  50. METHYLPREDNISOLONE W/SUCCINATE SODIUM [Concomitant]
     Active Substance: METHYLPREDNISOLONE SODIUM SUCCINATE
     Indication: ANTIALLERGIC THERAPY
     Dosage: 300 MG, QD
     Route: 065
     Dates: start: 20150919, end: 20150920
  51. DOXAZIN//DOXAZOSIN MESILATE [Concomitant]
     Dosage: 4 MG, BID
     Route: 048
     Dates: start: 20150917, end: 20151004
  52. PANTOPRAZOLE [Concomitant]
     Active Substance: PANTOPRAZOLE SODIUM
     Dosage: 40 MG, QD
     Route: 048
     Dates: start: 20151005, end: 20151102
  53. NIFEDIPINE. [Concomitant]
     Active Substance: NIFEDIPINE
     Dosage: 300 MG, BID
     Route: 048
     Dates: start: 20151202
  54. LANSOPRAZOLE. [Concomitant]
     Active Substance: LANSOPRAZOLE
     Indication: DUODENAL ULCER
     Dosage: 30 MG, QD
     Route: 065
     Dates: start: 20150908, end: 20150908
  55. FUROSEMIDE. [Concomitant]
     Active Substance: FUROSEMIDE
     Dosage: 30 MG, QD
     Route: 042
     Dates: start: 20150908, end: 20150908
  56. AMBROXOL [Concomitant]
     Active Substance: AMBROXOL
     Indication: PROPHYLAXIS
     Dosage: 15 MG, BID
     Route: 065
  57. CARDURA [Concomitant]
     Active Substance: DOXAZOSIN MESYLATE
     Indication: HYPERTENSION
     Dosage: 4 MG, BID
     Route: 065
     Dates: start: 20151005
  58. CEFOPERAZONE SODIUM W/TAZOBACTAM [Concomitant]
     Indication: PRODUCT USED FOR UNKNOWN INDICATION
     Dosage: 2 G, BID
     Route: 065
     Dates: start: 20150908
  59. AMBROXOL HYDROCHLORIDE [Concomitant]
     Active Substance: AMBROXOL HYDROCHLORIDE
     Indication: PRODUCTIVE COUGH
     Dosage: 15 MG, BID
     Route: 055
     Dates: start: 20151005
  60. METHYLPREDNISOLONE. [Suspect]
     Active Substance: METHYLPREDNISOLONE
     Dosage: 300 MG, QD
     Route: 065
     Dates: start: 20150919, end: 20150920
  61. BASILIXIMAB [Suspect]
     Active Substance: BASILIXIMAB
     Indication: RENAL TRANSPLANT
     Dosage: 20 MG, QD
     Route: 065
     Dates: start: 20150911, end: 20150911
  62. CICLOSPORIN [Suspect]
     Active Substance: CYCLOSPORINE
     Dosage: 250 MG, QD
     Route: 065
     Dates: start: 20151005, end: 20151201
  63. CICLOSPORIN [Suspect]
     Active Substance: CYCLOSPORINE
     Dosage: 200 MG, QD
     Route: 065
     Dates: start: 20151202, end: 20151218
  64. PREDNISONE. [Suspect]
     Active Substance: PREDNISONE
     Indication: ANTIALLERGIC THERAPY
     Dosage: 20 MG, QD
     Route: 065
     Dates: start: 20151202, end: 20151230
  65. BUTIOL//DEXAMETHASONE SODIUM PHOSPHATE [Concomitant]
     Indication: ANTIINFLAMMATORY THERAPY
     Dosage: 5 MG, QD
     Route: 042
     Dates: start: 20150911, end: 20150911
  66. METOPROLOL TARTRATE. [Concomitant]
     Active Substance: METOPROLOL TARTRATE
     Dosage: 25 MG, BID
     Route: 048
     Dates: start: 20151202
  67. ALOSTIN//ALPROSTADIL [Concomitant]
     Dosage: 0.01 MG, BID
     Route: 065
     Dates: start: 20151005, end: 20151005
  68. ADVACAL//CALCIUM [Concomitant]
     Dosage: 4000 MG, QD
     Route: 041
     Dates: start: 20150917, end: 20150917
  69. PANTOPRAZOLE [Concomitant]
     Active Substance: PANTOPRAZOLE SODIUM
     Indication: PROPHYLAXIS
     Dosage: 40 MG, QD
     Route: 048
     Dates: start: 20150927, end: 20151004
  70. CALCII CHLORIDUM//CALCIUM CHLORIDE [Concomitant]
     Dosage: 4000 MG, QD
     Route: 042
     Dates: start: 20150917, end: 20150917
  71. AMCAL VITAMIN C [Concomitant]
     Indication: NUTRITIONAL SUPPLEMENTATION
     Dosage: 2000 MG, QD
     Route: 042
     Dates: start: 20150908, end: 20150916
  72. SULODEXIDE [Concomitant]
     Active Substance: SULODEXIDE
     Dosage: 1 DF, BID
     Route: 048
     Dates: start: 20150926, end: 20150926
  73. NIFEDIPINE. [Concomitant]
     Active Substance: NIFEDIPINE
     Indication: HYPERTENSION
     Dosage: 0.03 G, QD
     Route: 048
     Dates: start: 20150910, end: 20151004
  74. FUROSEMIDE. [Concomitant]
     Active Substance: FUROSEMIDE
     Dosage: 20 MG, BID
     Route: 042
     Dates: start: 20151003, end: 20151003
  75. FUROSEMIDE. [Concomitant]
     Active Substance: FUROSEMIDE
     Dosage: 200 MG, QD
     Route: 042
     Dates: start: 20150910, end: 20150910
  76. MYCOPHENOLATE SODIUM [Concomitant]
     Active Substance: MYCOPHENOLATE SODIUM
     Dosage: 720 MG/DL, UNK
     Route: 065
     Dates: start: 20151005, end: 20151201
  77. PREDNISONE. [Suspect]
     Active Substance: PREDNISONE
     Indication: ANTIINFLAMMATORY THERAPY
     Dosage: 60 MG, QD
     Route: 065
     Dates: start: 20151005, end: 20151201
  78. ALBUMIN HUMAN [Concomitant]
     Active Substance: ALBUMIN (HUMAN)
     Dosage: 12500 MG,QD
     Route: 042
     Dates: start: 20151005, end: 20151005
  79. ADALAT [Concomitant]
     Active Substance: NIFEDIPINE
     Indication: HYPERTENSION
     Dosage: 30 MG, QD
     Route: 065
  80. METOPROLOL TARTRATE. [Concomitant]
     Active Substance: METOPROLOL TARTRATE
     Dosage: 25 MG, BID
     Route: 048
     Dates: start: 20151005, end: 20151102
  81. ALOSTIN//ALPROSTADIL [Concomitant]
     Indication: HYPERTENSION
     Dosage: 0.02 MG, BID
     Route: 065
     Dates: start: 20151001, end: 20151001
  82. DOXAZIN//DOXAZOSIN MESILATE [Concomitant]
     Indication: HYPERTENSION
     Dosage: 4 MG, BID
     Route: 048
     Dates: start: 20150917, end: 20150917
  83. EDOSTENE [Concomitant]
     Indication: CONSTIPATION
     Dosage: 1200 MG, QD
     Route: 048
     Dates: start: 20150910, end: 20151004
  84. AMCAL VITAMIN C [Concomitant]
     Indication: VITAMIN C DEFICIENCY
     Dosage: 1000 MG, QD
     Route: 042
     Dates: start: 20150908, end: 20150916
  85. SULODEXIDE [Concomitant]
     Active Substance: SULODEXIDE
     Indication: THROMBOSIS
     Dosage: 250 LSU, BID
     Route: 065
     Dates: start: 20150910
  86. SULODEXIDE [Concomitant]
     Active Substance: SULODEXIDE
     Dosage: 1 DF, BID
     Route: 048
     Dates: start: 20150910, end: 20150926
  87. NIFEDIPINE. [Concomitant]
     Active Substance: NIFEDIPINE
     Dosage: 0.3 G, BID
     Route: 065
     Dates: start: 20151005
  88. LANSOPRAZOLE. [Concomitant]
     Active Substance: LANSOPRAZOLE
     Indication: HAEMORRHAGE
  89. FUROSEMIDE. [Concomitant]
     Active Substance: FUROSEMIDE
     Dosage: 20 MG, BID
     Route: 042
     Dates: start: 20150919, end: 20150919
  90. AMPHOTERICIN B, LIPOSOME [Concomitant]
     Active Substance: AMPHOTERICIN B
     Indication: LUNG INFECTION
     Dosage: 10 MG, QD
     Route: 042
     Dates: start: 20151231, end: 20160106
  91. AMPHOTERICIN B, LIPOSOME [Concomitant]
     Active Substance: AMPHOTERICIN B
     Dosage: 15 MG, QD
     Route: 042
     Dates: start: 20160106, end: 20160108
  92. MEROPENEM. [Concomitant]
     Active Substance: MEROPENEM
     Indication: LUNG INFECTION
     Dosage: 500 MG, TID
     Route: 042
     Dates: start: 20151231, end: 20160104
  93. MYFORTIC [Suspect]
     Active Substance: MYCOPHENOLATE SODIUM
     Dosage: 720 MG, QD
     Route: 065
     Dates: start: 20151202, end: 20151225
  94. METHYLPREDNISOLONE. [Suspect]
     Active Substance: METHYLPREDNISOLONE
     Dosage: 400 MG, QD
     Route: 065
     Dates: start: 20150918, end: 20150918
  95. PREDNISONE. [Suspect]
     Active Substance: PREDNISONE
     Indication: KIDNEY TRANSPLANT REJECTION
     Dosage: 30 MG, QD
     Route: 065
     Dates: start: 20150913, end: 20151004
  96. INOSINE [Concomitant]
     Active Substance: INOSINE
     Indication: NUTRITIONAL SUPPLEMENTATION
     Dosage: 1000 MG, QD
     Route: 042
     Dates: start: 20150908, end: 20150916
  97. ALOSTIN//ALPROSTADIL [Concomitant]
     Indication: THROMBOSIS PROPHYLAXIS
     Dosage: 10 MG, BID
     Route: 042
     Dates: start: 20150909, end: 20150921
  98. DOXAZIN//DOXAZOSIN MESILATE [Concomitant]
     Dosage: 4 MG, BID
     Route: 048
     Dates: start: 20151202
  99. ADVACAL//CALCIUM [Concomitant]
     Indication: MINERAL SUPPLEMENTATION
     Dosage: 3000 MG, QD
     Route: 041
     Dates: start: 20150915, end: 20150915
  100. PANTOPRAZOLE [Concomitant]
     Active Substance: PANTOPRAZOLE SODIUM
     Dosage: 40 MG, QD
     Route: 048
     Dates: start: 20151202
  101. LACTULOSA [Concomitant]
     Active Substance: LACTULOSE
     Indication: CONSTIPATION PROPHYLAXIS
     Dosage: 66700 MG, QD
     Route: 048
     Dates: start: 20151009, end: 20151009
  102. SULODEXIDE [Concomitant]
     Active Substance: SULODEXIDE
     Indication: PROPHYLAXIS
     Dosage: 250 LSU, BID
     Route: 065
     Dates: start: 20151005
  103. NITROGLYCERIN. [Concomitant]
     Active Substance: NITROGLYCERIN
     Indication: PROPHYLAXIS
     Dosage: 10 MG, QD
     Route: 042
     Dates: start: 20150908, end: 20150909
  104. FUROSEMIDE. [Concomitant]
     Active Substance: FUROSEMIDE
     Indication: HYPERTENSION
     Dosage: 40 MG, BID
     Route: 042
  105. FUROSEMIDE. [Concomitant]
     Active Substance: FUROSEMIDE
     Dosage: 20 MG, BID
     Route: 042
     Dates: start: 20150925, end: 20150925
  106. FUROSEMIDE. [Concomitant]
     Active Substance: FUROSEMIDE
     Dosage: 20 MG, BID
     Route: 042
     Dates: start: 20150927, end: 20150927
  107. AK-DEX//DEXAMETHASONE SODIUM PHOSPHATE [Concomitant]
     Indication: ALLERGY PROPHYLAXIS
     Dosage: 5 MG, QD
     Route: 042
     Dates: start: 20150911, end: 20150911
  108. MYCOPHENOLATE SODIUM [Concomitant]
     Active Substance: MYCOPHENOLATE SODIUM
     Dosage: 1080 MG/DL, UNK
     Route: 065
     Dates: start: 20150913, end: 20151005
  109. MYFORTIC [Suspect]
     Active Substance: MYCOPHENOLATE SODIUM
     Indication: RENAL TRANSPLANT
     Dosage: 1440 MG, QD
     Route: 065
     Dates: start: 20150908, end: 20150911
  110. MYFORTIC [Suspect]
     Active Substance: MYCOPHENOLATE SODIUM
     Indication: PROPHYLAXIS AGAINST TRANSPLANT REJECTION
     Dosage: 1120 MG, QD
     Route: 065
     Dates: start: 20150911, end: 20150913
  111. METHYLPREDNISOLONE. [Suspect]
     Active Substance: METHYLPREDNISOLONE
     Dosage: 400 MG, QD
     Route: 065
     Dates: start: 20151231, end: 20160104
  112. PREDNISONE. [Suspect]
     Active Substance: PREDNISONE
     Indication: IMMUNOSUPPRESSION
     Dosage: 20 MG, QD
     Route: 065
     Dates: start: 20151231, end: 20160104
  113. PREDNISONE ACETATE [Concomitant]
     Active Substance: PREDNISONE ACETATE
     Indication: PRODUCT USED FOR UNKNOWN INDICATION
     Dosage: 30 MG, QD
     Route: 065
     Dates: start: 20150913
  114. ALBUMIN HUMAN [Concomitant]
     Active Substance: ALBUMIN (HUMAN)
     Dosage: 12500 MG, QD
     Route: 042
     Dates: start: 20151007, end: 20151014
  115. ADALAT [Concomitant]
     Active Substance: NIFEDIPINE
     Dosage: 300 MG, BID
     Route: 065
  116. SULODEXIDE [Concomitant]
     Active Substance: SULODEXIDE
     Dosage: 1 DF, BID
     Route: 048
     Dates: start: 20151005, end: 20151102
  117. INSULIN [Concomitant]
     Active Substance: INSULIN NOS
     Indication: BLOOD GLUCOSE ABNORMAL
     Dosage: 4 IU, BID
     Route: 042
     Dates: start: 20150908, end: 20150909
  118. FUROSEMIDE. [Concomitant]
     Active Substance: FUROSEMIDE
     Indication: PROPHYLAXIS
     Dosage: 20 MG, QD
     Route: 042
     Dates: start: 20151004, end: 20151004
  119. FUROSEMIDE. [Concomitant]
     Active Substance: FUROSEMIDE
     Dosage: 40 MG, QD
     Route: 042
     Dates: start: 20150923, end: 20150923
  120. MYCOPHENOLATE SODIUM [Concomitant]
     Active Substance: MYCOPHENOLATE SODIUM
     Dosage: 1080 MG/DL, UNK
     Route: 065
     Dates: start: 20151005, end: 20151005

REACTIONS (9)
  - Kidney transplant rejection [Recovered/Resolved]
  - Cytomegalovirus infection [Recovered/Resolved]
  - Urine output decreased [Recovered/Resolved]
  - Fatigue [Recovering/Resolving]
  - Constipation [Recovering/Resolving]
  - Cytomegalovirus infection [Recovered/Resolved]
  - Pain [Unknown]
  - Renal tubular disorder [Recovered/Resolved]
  - Abdominal distension [Recovering/Resolving]

NARRATIVE: CASE EVENT DATE: 20150912
